FAERS Safety Report 7266319-4 (Version None)
Quarter: 2011Q1

REPORT INFORMATION
  Report Type: 
  Country: None (occurrence: None)
  Receive Date: 20110131
  Receipt Date: 20110127
  Transmission Date: 20110831
  Serious: Yes (Other)
  Sender: FDA-Public Use
  Company Number: US-PFIZER INC-2011020072

PATIENT
  Sex: Female
  Weight: 49.433 kg

DRUGS (2)
  1. ADVIL [Suspect]
     Indication: LIP SWELLING
     Dosage: 200 MG, UNK
     Route: 048
     Dates: start: 20110126
  2. IBUPROFEN [Concomitant]
     Indication: LIP SWELLING
     Dosage: UNK

REACTIONS (3)
  - VISION BLURRED [None]
  - DIZZINESS [None]
  - DISORIENTATION [None]
